FAERS Safety Report 4441453-2 (Version None)
Quarter: 2004Q3

REPORT INFORMATION
  Report Type: 
  Country: None (occurrence: None)
  Receive Date: 20040728
  Receipt Date: 20040503
  Transmission Date: 20050211
  Serious: No
  Sender: FDA-Public Use
  Company Number: USA040566556

PATIENT
  Age: 40 Year
  Sex: Male
  Weight: 76 kg

DRUGS (6)
  1. STRATTERA [Suspect]
     Dosage: 100 MG ONCE PER WEEK FOR THREE WEEKS
     Dates: start: 20040101
  2. TRILEPTEL (OXCARBAZEPINE) [Concomitant]
  3. PLENDIL (PELODIPINE) [Concomitant]
  4. WELLBUTRIN [Concomitant]
  5. BUSPAR [Concomitant]
  6. ALLEGRA [Concomitant]

REACTIONS (5)
  - BREATH ODOUR [None]
  - DRY MOUTH [None]
  - DYSGEUSIA [None]
  - INCREASED UPPER AIRWAY SECRETION [None]
  - SENSORY DISTURBANCE [None]
